FAERS Safety Report 5939463-9 (Version None)
Quarter: 2008Q4

REPORT INFORMATION
  Report Type: 
  Country: None (occurrence: None)
  Receive Date: 20081029
  Receipt Date: 20081021
  Transmission Date: 20090506
  Serious: Yes (Death)
  Sender: FDA-Public Use
  Company Number: PTA2008000014

PATIENT
  Age: 64 Year
  Sex: Female

DRUGS (2)
  1. CARBOPLATIN [Suspect]
  2. NAVELBINE [Suspect]
     Dosage: 60 MG/M2, CYCLICAL, ORAL
     Route: 048

REACTIONS (4)
  - CHILLS [None]
  - MALAISE [None]
  - NEUTROPENIC SEPSIS [None]
  - PYREXIA [None]
